FAERS Safety Report 12764355 (Version 2)
Quarter: 2016Q4

REPORT INFORMATION
  Report Type: Spontaneous
  Country: GB (occurrence: GB)
  Receive Date: 20160920
  Receipt Date: 20161004
  Transmission Date: 20170207
  Serious: Yes (Other)
  Sender: FDA-Public Use
  Company Number: GB-TEVA-692707ACC

PATIENT
  Sex: Male

DRUGS (1)
  1. CIPROFLOXACIN. [Suspect]
     Active Substance: CIPROFLOXACIN
     Dosage: UNK

REACTIONS (7)
  - Neuropathy peripheral [Unknown]
  - Depression [Unknown]
  - Mental fatigue [Unknown]
  - Mental status changes [Unknown]
  - Tendon disorder [Unknown]
  - Hallucination [Unknown]
  - Insomnia [Unknown]
